FAERS Safety Report 14100938 (Version 1)
Quarter: 2017Q4

REPORT INFORMATION
  Report Type: Spontaneous
  Country: FR (occurrence: FR)
  Receive Date: 20171018
  Receipt Date: 20171018
  Transmission Date: 20180321
  Serious: Yes (Hospitalization)
  Sender: FDA-Public Use
  Company Number: FR-MERCK KGAA-2030413

PATIENT
  Age: 77 Year
  Sex: Female

DRUGS (1)
  1. NOVOTHYROX [Suspect]
     Active Substance: LEVOTHYROXINE SODIUM
     Indication: HYPOTHYROIDISM
     Route: 048
     Dates: start: 20170801

REACTIONS (5)
  - Muscle spasms [Unknown]
  - Affective disorder [Unknown]
  - Gait disturbance [Unknown]
  - Alopecia [Unknown]
  - Asthenia [Unknown]

NARRATIVE: CASE EVENT DATE: 201708
